FAERS Safety Report 9457666 (Version 5)
Quarter: 2014Q1

REPORT INFORMATION
  Report Type: Spontaneous
  Country: US (occurrence: US)
  Receive Date: 20130814
  Receipt Date: 20140110
  Transmission Date: 20141002
  Serious: No
  Sender: FDA-Public Use
  Company Number: US-PFIZER INC-2013234643

PATIENT
  Age: 74 Year
  Sex: Female
  Weight: 65.3 kg

DRUGS (17)
  1. XELJANZ [Suspect]
     Indication: RHEUMATOID ARTHRITIS
     Dosage: 5 MG, 2X/DAY
     Route: 048
     Dates: start: 20130614, end: 201308
  2. METHOTREXATE SODIUM [Suspect]
     Indication: RHEUMATOID ARTHRITIS
     Dosage: 2.5 MG-10MG ONCE WEEKLY
     Route: 048
     Dates: start: 20101210
  3. PREDNISONE [Suspect]
     Dosage: 5 MG
  4. VERAPAMIL HCL [Suspect]
     Dosage: UNK
  5. BABY ASPIRIN [Concomitant]
     Dosage: UNK
  6. AMBIEN [Concomitant]
     Dosage: UNK
  7. ATIVAN [Concomitant]
     Dosage: UNK
  8. CALCIUM [Concomitant]
     Dosage: UNK
  9. FLONASE [Concomitant]
     Dosage: UNK
  10. FOLIC ACID [Concomitant]
     Dosage: UNK
  11. FLEXERIL [Concomitant]
     Dosage: UNK
  12. PROTONIX [Concomitant]
     Dosage: UNK
  13. OMEGA-3 [Concomitant]
     Dosage: UNK
  14. TESSALON [Concomitant]
     Dosage: UNK
  15. TRAMADOL [Concomitant]
     Dosage: UNK
  16. VITAMIN D3 [Concomitant]
     Dosage: UNK
  17. WELLBUTRIN [Concomitant]
     Dosage: UNK

REACTIONS (4)
  - Bronchitis chronic [Unknown]
  - Sinus disorder [Unknown]
  - Alopecia [Unknown]
  - Headache [Unknown]
